FAERS Safety Report 19162594 (Version 1)
Quarter: 2021Q2

REPORT INFORMATION
  Report Type: Spontaneous
  Country: GB (occurrence: GB)
  Receive Date: 20210421
  Receipt Date: 20210421
  Transmission Date: 20210717
  Serious: Yes (Hospitalization)
  Sender: FDA-Public Use
  Company Number: NVSC2021GB084981

PATIENT

DRUGS (2)
  1. CARBAMAZEPINE. [Suspect]
     Active Substance: CARBAMAZEPINE
     Indication: EPILEPSY
     Dosage: UNK
     Route: 065
  2. AZATHIOPRINE. [Suspect]
     Active Substance: AZATHIOPRINE
     Indication: RASMUSSEN ENCEPHALITIS
     Dosage: 1.5 MG/KG, QD
     Route: 048

REACTIONS (4)
  - Febrile neutropenia [Recovered/Resolved]
  - Retinal haemorrhage [Recovered/Resolved]
  - Product use in unapproved indication [Unknown]
  - Pancytopenia [Recovered/Resolved]
